FAERS Safety Report 5946908-7 (Version None)
Quarter: 2008Q4

REPORT INFORMATION
  Report Type: 
  Country: None (occurrence: None)
  Receive Date: 20081107
  Receipt Date: 20081107
  Transmission Date: 20090506
  Serious: No
  Sender: FDA-Public Use
  Company Number: None

PATIENT
  Age: 25 Year
  Sex: Female
  Weight: 56.6996 kg

DRUGS (3)
  1. KENALOG [Suspect]
     Indication: LIP SWELLING
     Dosage: 40MG -SHOT- ONCE BY DOC
     Dates: start: 20080804, end: 20080804
  2. KENALOG [Suspect]
     Indication: PHARYNGEAL OEDEMA
     Dosage: 40MG -SHOT- ONCE BY DOC
     Dates: start: 20080804, end: 20080804
  3. KENALOG [Suspect]
     Indication: SWOLLEN TONGUE
     Dosage: 40MG -SHOT- ONCE BY DOC
     Dates: start: 20080804, end: 20080804

REACTIONS (5)
  - HYPOAESTHESIA [None]
  - INJECTION SITE DISCOLOURATION [None]
  - INJECTION SITE INDURATION [None]
  - MOVEMENT DISORDER [None]
  - MUSCULOSKELETAL STIFFNESS [None]
